FAERS Safety Report 9330579 (Version 1)
Quarter: 2013Q2

REPORT INFORMATION
  Report Type: Report from Study
  Country: AR (occurrence: AR)
  Receive Date: 20130605
  Receipt Date: 20130605
  Transmission Date: 20140414
  Serious: Yes (Other)
  Sender: FDA-Public Use
  Company Number: PHHY2013AR055282

PATIENT
  Age: 67 Year
  Sex: Male

DRUGS (3)
  1. EXFORGE D [Suspect]
     Indication: HYPERTENSION
     Dosage: 1 DF, 160 MG VALS/ 5 MG AMLO/ 12,5 MG HYDRO) DAILY
     Route: 048
  2. EXFORGE [Suspect]
     Indication: HYPERTENSION
     Dosage: 1 DF, (160 MG VALS/ 5 MG AMLO) DAILY
     Route: 048
  3. BISOPROLOL [Suspect]
     Dosage: 10 MG, UNK

REACTIONS (3)
  - Infarction [Unknown]
  - Hypertension [Not Recovered/Not Resolved]
  - Nervousness [Unknown]
